FAERS Safety Report 6073286-8 (Version None)
Quarter: 2009Q1

REPORT INFORMATION
  Report Type: 
  Country: None (occurrence: None)
  Receive Date: 20090205
  Receipt Date: 20081126
  Transmission Date: 20090719
  Serious: Yes (Hospitalization)
  Sender: FDA-Public Use
  Company Number: 2008EU002949

PATIENT
  Age: 52 Year
  Sex: Male

DRUGS (4)
  1. PROTOPIC [Suspect]
     Indication: ORAL LICHEN PLANUS
     Dosage: 0.1% TID, TOPICAL
     Route: 061
  2. MEDROL ACETATE [Concomitant]
  3. FLUKONAZOL (FLUCONAZOLE) [Concomitant]
  4. METYPRED (METHYLPREDNISOLONE SODIUM SUCCINATE) [Concomitant]

REACTIONS (3)
  - OFF LABEL USE [None]
  - OROPHARYNGEAL PAIN [None]
  - THROAT IRRITATION [None]
